FAERS Safety Report 6434779-4 (Version None)
Quarter: 2009Q4

REPORT INFORMATION
  Report Type: 
  Country: None (occurrence: None)
  Receive Date: 20091110
  Receipt Date: 20091030
  Transmission Date: 20100525
  Serious: Yes (Death, Hospitalization)
  Sender: FDA-Public Use
  Company Number: FR-PFIZER INC-2009234825

PATIENT
  Age: 63 Year
  Sex: Male
  Weight: 70 kg

DRUGS (3)
  1. VFEND [Suspect]
     Indication: CANDIDIASIS
     Dosage: 200 MG, 2X/DAY
     Dates: start: 20090603, end: 20090604
  2. VFEND [Suspect]
     Dosage: 200 MG, 1X/DAY
     Dates: start: 20090605, end: 20090605
  3. AMPHOTERICIN B [Concomitant]
     Indication: CANDIDIASIS
     Dosage: UNK
     Dates: end: 20090602

REACTIONS (4)
  - CHILLS [None]
  - DEATH [None]
  - LIVER DISORDER [None]
  - PYREXIA [None]
